FAERS Safety Report 17701903 (Version 1)
Quarter: 2020Q2

REPORT INFORMATION
  Report Type: Spontaneous
  Country: US (occurrence: US)
  Receive Date: 20200423
  Receipt Date: 20200423
  Transmission Date: 20200714
  Serious: No
  Sender: FDA-Public Use
  Company Number: US-ABBVIE-20K-163-3254697-00

PATIENT
  Sex: Female

DRUGS (1)
  1. ORILISSA [Suspect]
     Active Substance: ELAGOLIX SODIUM
     Indication: PRODUCT USED FOR UNKNOWN INDICATION
     Route: 048

REACTIONS (17)
  - Abdominal distension [Unknown]
  - Muscle spasms [Unknown]
  - Menstrual disorder [Unknown]
  - Irritable bowel syndrome [Unknown]
  - Fatigue [Unknown]
  - Unevaluable event [Unknown]
  - Dizziness [Unknown]
  - Fluid retention [Unknown]
  - Amenorrhoea [Unknown]
  - Insomnia [Unknown]
  - Arthralgia [Unknown]
  - Hot flush [Unknown]
  - Night sweats [Unknown]
  - Alopecia [Unknown]
  - Back pain [Unknown]
  - Headache [Unknown]
  - Abnormal loss of weight [Unknown]
